FAERS Safety Report 12278103 (Version 4)
Quarter: 2020Q2

REPORT INFORMATION
  Report Type: Report from Study
  Country: DE (occurrence: DE)
  Receive Date: 20160418
  Receipt Date: 20200615
  Transmission Date: 20200713
  Serious: Yes (Other)
  Sender: FDA-Public Use
  Company Number: DE-BIOGEN-2015BI031979

PATIENT
  Age: 34 Year
  Sex: Female
  Weight: 67 kg

DRUGS (6)
  1. COPAXONE [Concomitant]
     Active Substance: GLATIRAMER ACETATE
     Route: 065
     Dates: end: 201501
  2. TECFIDERA [Suspect]
     Active Substance: DIMETHYL FUMARATE
     Indication: MULTIPLE SCLEROSIS
     Route: 048
     Dates: start: 201409
  3. VITAMIN D3 [Concomitant]
     Active Substance: CHOLECALCIFEROL
     Indication: PROPHYLAXIS
     Route: 048
     Dates: start: 201410
  4. FOLIC ACID. [Concomitant]
     Active Substance: FOLIC ACID
     Indication: CONTRACEPTION
     Route: 048
     Dates: start: 201410
  5. SELENIUM [Concomitant]
     Active Substance: SELENIUM
     Indication: PROPHYLAXIS
     Route: 048
     Dates: start: 201505
  6. COBALAMIN [Concomitant]
     Active Substance: COBALAMIN
     Indication: PROPHYLAXIS
     Route: 065
     Dates: start: 201410

REACTIONS (3)
  - Caesarean section [Recovered/Resolved]
  - Pregnancy [Recovered/Resolved]
  - Premature labour [Recovered/Resolved]

NARRATIVE: CASE EVENT DATE: 20141208
